FAERS Safety Report 18457111 (Version 1)
Quarter: 2020Q4

REPORT INFORMATION
  Report Type: Spontaneous
  Country: CA (occurrence: CA)
  Receive Date: 20201103
  Receipt Date: 20201103
  Transmission Date: 20210114
  Serious: Yes (Death, Other)
  Sender: FDA-Public Use
  Company Number: CA-GLAXOSMITHKLINE-CA2020GSK217640

PATIENT
  Age: 73 Year
  Sex: Female

DRUGS (1)
  1. AVANDIA [Suspect]
     Active Substance: ROSIGLITAZONE MALEATE
     Indication: DIABETES MELLITUS
     Dosage: UNK, QD
     Route: 048
     Dates: start: 20010221, end: 20050801

REACTIONS (9)
  - Cardiac failure congestive [Unknown]
  - Acute myocardial infarction [Unknown]
  - Left ventricular dysfunction [Unknown]
  - Ventricular fibrillation [Unknown]
  - Myocardial ischaemia [Unknown]
  - Hypertension [Unknown]
  - Cardiac arrest [Fatal]
  - Myocardial infarction [Unknown]
  - Mitral valve incompetence [Unknown]

NARRATIVE: CASE EVENT DATE: 20050927
